FAERS Safety Report 23321217 (Version 7)
Quarter: 2024Q1

REPORT INFORMATION
  Report Type: Spontaneous
  Country: CA (occurrence: CA)
  Receive Date: 20231220
  Receipt Date: 20240322
  Transmission Date: 20240410
  Serious: Yes (Life-Threatening)
  Sender: FDA-Public Use
  Company Number: CA-PFIZER INC-PV202300198180

PATIENT
  Age: 80 Year
  Sex: Female
  Weight: 52.4 kg

DRUGS (5)
  1. ZIRABEV [Suspect]
     Active Substance: BEVACIZUMAB-BVZR
     Indication: Ovarian cancer
     Dosage: 7.5 MG/KG, Q 3 WEEKS WITH 6 REPEATS REASSESS
  2. ZIRABEV [Suspect]
     Active Substance: BEVACIZUMAB-BVZR
     Dosage: 393 MG
     Route: 042
     Dates: start: 20240117
  3. ZIRABEV [Suspect]
     Active Substance: BEVACIZUMAB-BVZR
     Dosage: 393 MG
     Route: 042
     Dates: start: 20240207
  4. ZIRABEV [Suspect]
     Active Substance: BEVACIZUMAB-BVZR
     Dosage: 393 MG, EVERY 3 WEEKS
     Route: 042
     Dates: start: 20240228
  5. ZIRABEV [Suspect]
     Active Substance: BEVACIZUMAB-BVZR
     Dosage: 393 MG
     Dates: start: 20240320

REACTIONS (7)
  - Ascites [Unknown]
  - Pleural effusion [Unknown]
  - Weight decreased [Unknown]
  - Fatigue [Unknown]
  - Blood pressure systolic increased [Unknown]
  - Flushing [Unknown]
  - Off label use [Unknown]
